FAERS Safety Report 10068005 (Version 1)
Quarter: 2014Q2

REPORT INFORMATION
  Report Type: Spontaneous
  Country: US (occurrence: US)
  Receive Date: 20140409
  Receipt Date: 20140409
  Transmission Date: 20141212
  Serious: Yes (Hospitalization)
  Sender: FDA-Public Use
  Company Number: US-CUBIST PHARMACEUTICAL, INC.-2014CBST000496

PATIENT
  Sex: 0

DRUGS (2)
  1. CUBICIN [Suspect]
     Indication: CELLULITIS
     Dosage: 11.36 MG/KG, QD (10 ML X 2)
     Route: 042
     Dates: start: 20140226, end: 201403
  2. CUBICIN [Suspect]
     Dosage: 1000 MG, QD (10 ML X 2)
     Route: 042
     Dates: start: 20140226, end: 201403

REACTIONS (2)
  - Pneumonitis [Not Recovered/Not Resolved]
  - Cardiac failure [Not Recovered/Not Resolved]
